FAERS Safety Report 7591971-3 (Version None)
Quarter: 2011Q2

REPORT INFORMATION
  Report Type: 
  Country: None (occurrence: None)
  Receive Date: 20110627
  Receipt Date: 20110613
  Transmission Date: 20111010
  Serious: Yes (Congenital Anomaly)
  Sender: FDA-Public Use
  Company Number: 2011MA007154

PATIENT
  Sex: Female

DRUGS (1)
  1. FLUOXETINE [Suspect]
     Dosage: 40 MG,

REACTIONS (9)
  - ABORTION INDUCED [None]
  - HYPOPLASTIC RIGHT HEART SYNDROME [None]
  - MATERNAL DRUGS AFFECTING FOETUS [None]
  - SINGLE UMBILICAL ARTERY [None]
  - EXOMPHALOS [None]
  - MULTIPLE CARDIAC DEFECTS [None]
  - FOETAL CARDIAC DISORDER [None]
  - FOETAL GROWTH RESTRICTION [None]
  - CONGENITAL TRICUSPID VALVE INCOMPETENCE [None]
